FAERS Safety Report 9487318 (Version 2)
Quarter: 2013Q4

REPORT INFORMATION
  Report Type: Spontaneous
  Country: US (occurrence: US)
  Receive Date: 20130829
  Receipt Date: 20131112
  Transmission Date: 20140711
  Serious: Yes (Hospitalization)
  Sender: FDA-Public Use
  Company Number: US-B.I. PHARMACEUTICALS,INC./RIDGEFIELD-2013-BI-26414BP

PATIENT
  Age: 43 Year
  Sex: Male
  Weight: 109 kg

DRUGS (9)
  1. SPIRIVA [Suspect]
     Indication: CHRONIC OBSTRUCTIVE PULMONARY DISEASE
     Dosage: 18 MCG
     Route: 055
     Dates: start: 2011
  2. EFFIENT [Concomitant]
     Indication: ANTIPLATELET THERAPY
     Dosage: 10 MG
     Route: 048
     Dates: start: 201303
  3. THEOPHYLLINE [Concomitant]
     Indication: ASTHMA
     Dosage: 600 MG
     Route: 048
     Dates: start: 1987
  4. ALBUTEROL [Concomitant]
     Indication: ASTHMA
     Dates: start: 1981
  5. ATORVASTATIN [Concomitant]
     Indication: BLOOD CHOLESTEROL INCREASED
     Dosage: 80 MG
     Route: 048
     Dates: start: 20130324
  6. CLARITIN [Concomitant]
     Indication: SEASONAL ALLERGY
     Dosage: 10 MG
     Route: 048
     Dates: start: 2012
  7. ASPIRIN [Concomitant]
     Indication: ANTIPLATELET THERAPY
     Dosage: 81 MG
     Route: 048
     Dates: start: 201303
  8. NEXIUM [Concomitant]
     Indication: GASTROOESOPHAGEAL REFLUX DISEASE
     Dosage: 40 MG
     Route: 048
     Dates: start: 2012
  9. RAMIPRIL [Concomitant]
     Indication: HYPERTENSION
     Dosage: 1.25 MG
     Route: 048
     Dates: start: 20130324

REACTIONS (4)
  - Myocardial infarction [Recovered/Resolved]
  - Myocardial infarction [Recovered/Resolved]
  - Stent placement [Recovered/Resolved]
  - Memory impairment [Not Recovered/Not Resolved]
